FAERS Safety Report 6988314-2 (Version None)
Quarter: 2010Q3

REPORT INFORMATION
  Report Type: 
  Country: None (occurrence: None)
  Receive Date: 20100916
  Receipt Date: 20100901
  Transmission Date: 20110219
  Serious: Yes (Other)
  Sender: FDA-Public Use
  Company Number: FR-JNJFOC-JAFRA35662

PATIENT
  Sex: Female
  Weight: 46 kg

DRUGS (2)
  1. GYNO-PEVARYL LP 150 [Suspect]
     Indication: VULVOVAGINAL MYCOTIC INFECTION
     Route: 048
  2. DAKTARIN [Suspect]
     Indication: VULVOVAGINAL MYCOTIC INFECTION
     Route: 048
     Dates: start: 19970809, end: 19970818

REACTIONS (1)
  - ABORTION [None]
